FAERS Safety Report 7509937-8 (Version None)
Quarter: 2011Q2

REPORT INFORMATION
  Report Type: 
  Country: None (occurrence: None)
  Receive Date: 20110527
  Receipt Date: 20110112
  Transmission Date: 20111010
  Serious: Yes (Other)
  Sender: FDA-Public Use
  Company Number: PHHY2011CH02441

PATIENT
  Sex: Female

DRUGS (6)
  1. SANDIMMUNE [Suspect]
     Indication: RENAL TRANSPLANT
     Dosage: 150 MG DAILY
     Dates: start: 20000101, end: 20010123
  2. ALDACTONE [Concomitant]
     Dosage: 25 MG PER DAY
  3. TORSEMIDE [Concomitant]
     Dosage: 5 MG PER DAY
  4. INDERAL [Concomitant]
     Dosage: 80 MG PER DAY
  5. PREDNISONE [Concomitant]
     Dosage: 10 MG PER DAY
  6. DEURSIL [Concomitant]
     Dosage: 600 MG PER DAY

REACTIONS (9)
  - HEPATIC CIRRHOSIS [None]
  - JAUNDICE [None]
  - HEPATITIS CHOLESTATIC [None]
  - BLOOD ALKALINE PHOSPHATASE INCREASED [None]
  - HEPATIC ENZYME INCREASED [None]
  - BLOOD BILIRUBIN INCREASED [None]
  - ALANINE AMINOTRANSFERASE INCREASED [None]
  - HEPATIC ENCEPHALOPATHY [None]
  - ASPARTATE AMINOTRANSFERASE INCREASED [None]
